FAERS Safety Report 25144569 (Version 1)
Quarter: 2025Q2

REPORT INFORMATION
  Report Type: Spontaneous
  Country: FR (occurrence: FR)
  Receive Date: 20250401
  Receipt Date: 20250401
  Transmission Date: 20250716
  Serious: Yes (Other)
  Sender: MYLAN
  Company Number: FR-OPELLA-2025OHG007203

PATIENT
  Age: 85 Year
  Sex: Female

DRUGS (2)
  1. PAROXETINE [Suspect]
     Active Substance: PAROXETINE
     Indication: Product used for unknown indication
  2. MAALOX ANTACID [Suspect]
     Active Substance: ALUMINUM HYDROXIDE\DIMETHICONE\MAGNESIUM HYDROXIDE
     Indication: Hyperchlorhydria

REACTIONS (6)
  - Angina pectoris [Unknown]
  - Abdominal pain upper [Unknown]
  - Dry mouth [Unknown]
  - Pruritus [Unknown]
  - Constipation [Unknown]
  - Therapeutic product effect incomplete [Unknown]
